FAERS Safety Report 8599423-9 (Version None)
Quarter: 2012Q3

REPORT INFORMATION
  Report Type: 
  Country: None (occurrence: None)
  Receive Date: 20120816
  Receipt Date: 20120813
  Transmission Date: 20120928
  Serious: Yes (Other)
  Sender: FDA-Public Use
  Company Number: US-BAYER-2012-083254

PATIENT
  Sex: Female

DRUGS (2)
  1. ANTIHYPERTENSIVES [Concomitant]
  2. ASPIRIN [Suspect]
     Indication: HEADACHE
     Route: 048

REACTIONS (8)
  - FOREIGN BODY [None]
  - CHOKING [None]
  - DYSPHAGIA [None]
  - PHARYNGEAL OEDEMA [None]
  - OROPHARYNGEAL PAIN [None]
  - WHEEZING [None]
  - THROAT IRRITATION [None]
  - THROAT TIGHTNESS [None]
